FAERS Safety Report 6810563-4 (Version None)
Quarter: 2010Q2

REPORT INFORMATION
  Report Type: 
  Country: None (occurrence: None)
  Receive Date: 20100630
  Receipt Date: 20100623
  Transmission Date: 20101027
  Serious: Yes (Hospitalization)
  Sender: FDA-Public Use
  Company Number: US-GENENTECH-302410

PATIENT
  Sex: Male
  Weight: 136 kg

DRUGS (1)
  1. RITUXAN [Suspect]
     Indication: CHRONIC LYMPHOCYTIC LEUKAEMIA
     Dosage: 1325 UNK, Q4W

REACTIONS (3)
  - CELLULITIS [None]
  - INFUSION SITE EXTRAVASATION [None]
  - PARAESTHESIA [None]
